FAERS Safety Report 8807523 (Version 1)
Quarter: 2012Q4

REPORT INFORMATION
  Report Type: 
  Country: US (occurrence: US)
  Receive Date: 20120925
  Receipt Date: 20120925
  Transmission Date: 20130627
  Serious: Yes (Death, Other)
  Sender: FDA-Public Use
  Company Number: US-PFIZER INC-2012223973

PATIENT
  Age: 67 Year
  Sex: Male

DRUGS (1)
  1. RAPAMUNE [Suspect]
     Indication: GRAFT VERSUS HOST DISEASE
     Dosage: 1 mg, 1x/day
     Dates: start: 20120210, end: 20120907

REACTIONS (3)
  - Respiratory failure [Fatal]
  - Renal failure [Fatal]
  - Graft versus host disease [Unknown]
